FAERS Safety Report 4982831-2 (Version None)
Quarter: 2006Q2

REPORT INFORMATION
  Report Type: 
  Country: None (occurrence: None)
  Receive Date: 20060425
  Receipt Date: 20060309
  Transmission Date: 20061013
  Serious: Yes (Disabling)
  Sender: FDA-Public Use
  Company Number: US-MERCK-0603USA01605

PATIENT
  Age: 86 Year
  Sex: Female
  Weight: 50 kg

DRUGS (5)
  1. FOSAMAX [Suspect]
     Indication: OSTEOPOROSIS
     Route: 048
     Dates: start: 20060214, end: 20060306
  2. PRILOSEC [Concomitant]
     Route: 048
     Dates: start: 20000101
  3. INDERAL [Concomitant]
     Route: 048
     Dates: start: 19950201
  4. ISORDIL [Concomitant]
     Route: 048
     Dates: start: 19950401
  5. DIGOXIN [Concomitant]
     Route: 065
     Dates: start: 19930301

REACTIONS (2)
  - MOVEMENT DISORDER [None]
  - MUSCULOSKELETAL CHEST PAIN [None]
